FAERS Safety Report 13968063 (Version 1)
Quarter: 2017Q3

REPORT INFORMATION
  Report Type: Spontaneous
  Country: US (occurrence: US)
  Receive Date: 20170914
  Receipt Date: 20170914
  Transmission Date: 20171128
  Serious: Yes (Hospitalization, Other)
  Sender: FDA-Public Use
  Company Number: US-WEST-WARD PHARMACEUTICALS CORP.-US-H14001-17-03372

PATIENT
  Age: 59 Year
  Sex: Male
  Weight: 78 kg

DRUGS (5)
  1. INCB018424 [Suspect]
     Active Substance: RUXOLITINIB
     Indication: GRAFT VERSUS HOST DISEASE
     Route: 048
     Dates: start: 20170617
  2. INCB018424 [Suspect]
     Active Substance: RUXOLITINIB
     Route: 048
  3. PREDNISONE. [Suspect]
     Active Substance: PREDNISONE
     Indication: ACUTE GRAFT VERSUS HOST DISEASE
     Dosage: 80 MG AM AND 15 MG PM
     Route: 048
     Dates: start: 20170603
  4. PREDNISONE. [Suspect]
     Active Substance: PREDNISONE
     Route: 048
     Dates: start: 20170708
  5. TACROLIMUS. [Suspect]
     Active Substance: TACROLIMUS
     Indication: PRODUCT USED FOR UNKNOWN INDICATION
     Route: 065

REACTIONS (10)
  - Irritability [Unknown]
  - Human herpesvirus 6 infection [Unknown]
  - Normal pressure hydrocephalus [Unknown]
  - Mental status changes [Recovered/Resolved with Sequelae]
  - Central nervous system infection [Unknown]
  - BK virus infection [Unknown]
  - Cerebral ischaemia [Unknown]
  - Hyperglycaemia [Unknown]
  - Epstein-Barr virus infection [Unknown]
  - Cerebral ventricle dilatation [Unknown]

NARRATIVE: CASE EVENT DATE: 2017
